FAERS Safety Report 7438395-7 (Version None)
Quarter: 2011Q2

REPORT INFORMATION
  Report Type: 
  Country: None (occurrence: None)
  Receive Date: 20110426
  Receipt Date: 20110415
  Transmission Date: 20111010
  Serious: Yes (Death)
  Sender: FDA-Public Use
  Company Number: US-CELGENEUS-163-21880-11032088

PATIENT
  Sex: Male

DRUGS (9)
  1. REVLIMID [Suspect]
     Dosage: 10 MILLIGRAM
     Route: 048
     Dates: start: 20100901
  2. LASIX [Concomitant]
     Route: 065
  3. SYNTHROID [Concomitant]
     Route: 065
  4. CALCIUM [Concomitant]
     Indication: SUPPLEMENTATION THERAPY
     Route: 065
  5. ATENOLOL [Concomitant]
     Route: 065
  6. SPIRONOLACTONE [Concomitant]
     Route: 065
  7. REVLIMID [Suspect]
     Dosage: 5 MILLIGRAM
     Route: 048
     Dates: start: 20081101
  8. REVLIMID [Suspect]
     Dosage: 10-15 MG
     Route: 048
     Dates: start: 20090301
  9. REVLIMID [Suspect]
     Dosage: 5 MILLIGRAM
     Route: 048
     Dates: start: 20110101

REACTIONS (1)
  - MULTIPLE MYELOMA [None]
